FAERS Safety Report 25370181 (Version 1)
Quarter: 2025Q2

REPORT INFORMATION
  Report Type: Spontaneous
  Country: BR (occurrence: BR)
  Receive Date: 20250528
  Receipt Date: 20250528
  Transmission Date: 20250717
  Serious: Yes (Other)
  Sender: NOVO NORDISK
  Company Number: BR-NOVOPROD-1419324

PATIENT
  Age: 829 Month
  Sex: Female

DRUGS (1)
  1. NOVOLIN N [Suspect]
     Active Substance: INSULIN HUMAN
     Indication: Diabetes mellitus
     Dosage: 60 IU, QD (26 IU MORNING; 16 IU AFTERNOOON; 18 IU NIGHT)
     Dates: start: 2022

REACTIONS (3)
  - Surgery [Unknown]
  - Neoplasm malignant [Not Recovered/Not Resolved]
  - Product availability issue [Unknown]
